FAERS Safety Report 11500160 (Version 1)
Quarter: 2015Q3

REPORT INFORMATION
  Report Type: Report from Study
  Country: US (occurrence: US)
  Receive Date: 20150914
  Receipt Date: 20150914
  Transmission Date: 20151125
  Serious: Yes (Hospitalization, Other)
  Sender: FDA-Public Use
  Company Number: US-PURDUE-USA-2015-0126111

PATIENT
  Sex: Female

DRUGS (2)
  1. OXYCODONE HCL IR CAPSULES [Suspect]
     Active Substance: OXYCODONE HYDROCHLORIDE
     Indication: PRODUCT USED FOR UNKNOWN INDICATION
     Dosage: 20 MG, PRN (UP TO 6 PER DAY)
     Route: 048
  2. OXYCONTIN [Suspect]
     Active Substance: OXYCODONE HYDROCHLORIDE
     Indication: PRODUCT USED FOR UNKNOWN INDICATION
     Dosage: 40 MG, Q8H
     Route: 048

REACTIONS (6)
  - Pain [Unknown]
  - Memory impairment [Unknown]
  - Road traffic accident [Unknown]
  - Activities of daily living impaired [Unknown]
  - Surgery [Unknown]
  - Spinal fracture [Unknown]
